FAERS Safety Report 4492533-7 (Version None)
Quarter: 2004Q4

REPORT INFORMATION
  Report Type: 
  Country: None (occurrence: None)
  Receive Date: 20041029
  Receipt Date: 20041019
  Transmission Date: 20050328
  Serious: No
  Sender: FDA-Public Use
  Company Number: 2004UW21692

PATIENT
  Age: 43 Year
  Sex: Female

DRUGS (7)
  1. LOSEC [Suspect]
     Dosage: 20 MG DAILY PO
     Route: 048
  2. SIMVASTATIN [Suspect]
  3. CO-TRIMOXAZOLE [Concomitant]
  4. CYCLOSPORINE [Concomitant]
  5. ZANTAC [Concomitant]
  6. PREDNISONE [Concomitant]
  7. DIAMOX [Concomitant]

REACTIONS (3)
  - BLOOD CREATINE PHOSPHOKINASE INCREASED [None]
  - MUSCULAR WEAKNESS [None]
  - PAIN [None]
